FAERS Safety Report 8397571-X (Version None)
Quarter: 2012Q2

REPORT INFORMATION
  Report Type: 
  Country: None (occurrence: None)
  Receive Date: 20120529
  Receipt Date: 20120529
  Transmission Date: 20120825
  Serious: Yes (Other)
  Sender: FDA-Public Use
  Company Number: None

PATIENT
  Age: 36 Year
  Sex: Female
  Weight: 92.5338 kg

DRUGS (1)
  1. ABILIFY [Suspect]
     Indication: BIPOLAR I DISORDER
     Dosage: PO
     Route: 048
     Dates: start: 20120229, end: 20120528

REACTIONS (5)
  - PERSONALITY CHANGE [None]
  - WEIGHT INCREASED [None]
  - BODY DYSMORPHIC DISORDER [None]
  - FATIGUE [None]
  - LETHARGY [None]
